FAERS Safety Report 4941628-X (Version None)
Quarter: 2006Q1

REPORT INFORMATION
  Report Type: 
  Country: None (occurrence: None)
  Receive Date: 20060308
  Receipt Date: 20060223
  Transmission Date: 20060701
  Serious: Yes (Hospitalization)
  Sender: FDA-Public Use
  Company Number: HQWYE767430SEP05

PATIENT
  Age: 73 Year
  Sex: Female

DRUGS (11)
  1. VENLAFAXINE HCL EXTENDED-RELEASE [Suspect]
     Indication: MAJOR DEPRESSION
     Dosage: SEE IMAGE
     Route: 048
     Dates: start: 20050920, end: 20050921
  2. VENLAFAXINE HCL EXTENDED-RELEASE [Suspect]
     Indication: MAJOR DEPRESSION
     Dosage: SEE IMAGE
     Route: 048
     Dates: start: 20050923, end: 20050923
  3. GASTROM (ECABET MONOSODIUM) [Concomitant]
  4. FAMOTIDINE [Concomitant]
  5. GASMOTIN (MOSAPRIDE CITRATE) [Concomitant]
  6. YODEL (SENNA) [Concomitant]
  7. LENDORM [Concomitant]
  8. ZOLPIDEM TARTRATE [Concomitant]
  9. DOGMATYL (SULPIRIDE) [Concomitant]
  10. RIZE (CLOTIAZEPAM) [Concomitant]
  11. PAXIL [Concomitant]

REACTIONS (6)
  - ANOREXIA [None]
  - GENERAL PHYSICAL HEALTH DETERIORATION [None]
  - INSOMNIA [None]
  - NAUSEA [None]
  - PARKINSON'S DISEASE [None]
  - VERTIGO [None]
